FAERS Safety Report 20376224 (Version 1)
Quarter: 2022Q1

REPORT INFORMATION
  Report Type: Spontaneous
  Country: US (occurrence: US)
  Receive Date: 20220125
  Receipt Date: 20220125
  Transmission Date: 20220423
  Serious: Yes (Other)
  Sender: FDA-Public Use
  Company Number: US-INCYTE CORPORATION-2022IN000680

PATIENT

DRUGS (1)
  1. JAKAFI [Suspect]
     Active Substance: RUXOLITINIB
     Indication: Acute graft versus host disease
     Dosage: 5 MILLIGRAM, BID
     Route: 048

REACTIONS (4)
  - Cytomegalovirus enteritis [Unknown]
  - Adenovirus infection [Unknown]
  - Vomiting [Unknown]
  - Diarrhoea [Unknown]
